FAERS Safety Report 9281795 (Version 3)
Quarter: 2013Q4

REPORT INFORMATION
  Report Type: Spontaneous
  Country: US (occurrence: US)
  Receive Date: 20130510
  Receipt Date: 20131015
  Transmission Date: 20140711
  Serious: Yes (Death, Hospitalization)
  Sender: FDA-Public Use
  Company Number: US-B.I. PHARMACEUTICALS,INC./RIDGEFIELD-2013-BI-12873BP

PATIENT
  Sex: Male
  Weight: 77.11 kg

DRUGS (19)
  1. PRADAXA [Suspect]
     Indication: ANTICOAGULANT THERAPY
     Dosage: 300 MG
     Route: 048
     Dates: start: 20101214
  2. PRADAXA [Suspect]
     Indication: ATRIAL FIBRILLATION
  3. COREG [Concomitant]
     Dosage: 3.125 MG
     Dates: start: 2003
  4. COREG [Concomitant]
     Dosage: 12.5 MG
     Dates: start: 2003
  5. GLIPIZIDE [Concomitant]
     Dates: start: 1990
  6. TRAVATAN [Concomitant]
     Dates: start: 2008
  7. HYZAAR [Concomitant]
     Dates: start: 2010
  8. LOSARTAN [Concomitant]
     Dates: start: 2010
  9. MULTIDOSE VITAMIN [Concomitant]
  10. METFORMIN [Concomitant]
  11. LANTUS [Concomitant]
     Dosage: 10 U
  12. PREDNISONE [Concomitant]
  13. ZOLPIDEM [Concomitant]
  14. LORAZEPAM [Concomitant]
  15. JANUVIA [Concomitant]
  16. SPIRIVA [Concomitant]
  17. VITAMIN B-12 [Concomitant]
  18. FERROUS SULFATE [Concomitant]
     Dosage: 975 MG
  19. VICODIN ES [Concomitant]

REACTIONS (13)
  - Cerebral haemorrhage [Fatal]
  - Ischaemic stroke [Fatal]
  - Respiratory distress [Fatal]
  - Pneumonia [Recovered/Resolved]
  - Gastrointestinal haemorrhage [Unknown]
  - Anaemia [Unknown]
  - Fall [Unknown]
  - Septic shock [Unknown]
  - Urinary tract infection [Unknown]
  - Epistaxis [Unknown]
  - Haematuria [Unknown]
  - Dysarthria [Unknown]
  - Dizziness [Unknown]
